FAERS Safety Report 5722459-X (Version None)
Quarter: 2008Q2

REPORT INFORMATION
  Report Type: 
  Country: None (occurrence: None)
  Receive Date: 20080429
  Receipt Date: 20071109
  Transmission Date: 20081010
  Serious: No
  Sender: FDA-Public Use
  Company Number: US-ASTRAZENECA-2007UW23048

PATIENT
  Age: 53 Year
  Sex: Female

DRUGS (6)
  1. NEXIUM [Suspect]
     Indication: GASTROOESOPHAGEAL REFLUX DISEASE
     Route: 048
     Dates: start: 20040101
  2. NEXIUM [Suspect]
     Route: 048
     Dates: start: 20040101
  3. NEXIUM [Suspect]
     Route: 048
     Dates: start: 20070101
  4. NEXIUM [Suspect]
     Route: 048
     Dates: start: 20070101
  5. NEXIUM [Suspect]
     Route: 048
     Dates: start: 20070101
  6. NEXIUM [Suspect]
     Route: 048
     Dates: start: 20070101

REACTIONS (1)
  - DRUG INEFFECTIVE [None]
